FAERS Safety Report 12417639 (Version 8)
Quarter: 2017Q3

REPORT INFORMATION
  Report Type: Report from Study
  Country: CA (occurrence: CA)
  Receive Date: 20160530
  Receipt Date: 20170821
  Transmission Date: 20171127
  Serious: Yes (Other)
  Sender: FDA-Public Use
  Company Number: PHHY2015CA039786

PATIENT
  Age: 68 Year
  Sex: Female

DRUGS (2)
  1. LOVASTATIN. [Concomitant]
     Active Substance: LOVASTATIN
     Indication: PRODUCT USED FOR UNKNOWN INDICATION
     Route: 065
  2. SANDOSTATIN LAR DEPOT [Suspect]
     Active Substance: OCTREOTIDE ACETATE
     Indication: NEUROENDOCRINE TUMOUR
     Dosage: 40 MG, QMO (EVERY 4 WEEKS)
     Route: 030
     Dates: start: 20140808

REACTIONS (21)
  - Vomiting [Recovered/Resolved]
  - Neuroendocrine carcinoma metastatic [Unknown]
  - Metastases to bone [Unknown]
  - Malignant neoplasm progression [Unknown]
  - Groin pain [Recovering/Resolving]
  - Body temperature decreased [Unknown]
  - Abdominal pain [Recovered/Resolved]
  - Dyspepsia [Unknown]
  - Mesenteric vein thrombosis [Unknown]
  - Fracture [Unknown]
  - Oedema peripheral [Unknown]
  - Blood pressure systolic increased [Unknown]
  - Gait disturbance [Recovering/Resolving]
  - Nasopharyngitis [Unknown]
  - Chills [Unknown]
  - Abdominal pain [Unknown]
  - Diarrhoea [Recovering/Resolving]
  - Constipation [Recovered/Resolved]
  - Contusion [Recovering/Resolving]
  - Fall [Recovering/Resolving]
  - Needle issue [Unknown]

NARRATIVE: CASE EVENT DATE: 20150330
